FAERS Safety Report 9147934 (Version 2)
Quarter: 2013Q1

REPORT INFORMATION
  Report Type: Spontaneous
  Country: US (occurrence: US)
  Receive Date: 20130305
  Receipt Date: 20130307
  Transmission Date: 20140127
  Serious: Yes (Hospitalization, Other)
  Sender: FDA-Public Use
  Company Number: US-RB-050376-13

PATIENT
  Age: 35 Year
  Sex: Male

DRUGS (1)
  1. DELSYM ADULT ORANGE [Suspect]
     Indication: COUGH
     Dosage: 2 DOSES 12 HOURS APART
     Route: 048
     Dates: start: 20130209

REACTIONS (3)
  - Blood pressure increased [Recovered/Resolved]
  - Heart rate increased [Recovered/Resolved]
  - Heart rate increased [Recovered/Resolved]
